FAERS Safety Report 5418461-8 (Version None)
Quarter: 2007Q3

REPORT INFORMATION
  Report Type: 
  Country: None (occurrence: None)
  Receive Date: 20070817
  Receipt Date: 20070806
  Transmission Date: 20080115
  Serious: Yes (Hospitalization)
  Sender: FDA-Public Use
  Company Number: US-ELI_LILLY_AND_COMPANY-US200708001069

PATIENT
  Age: 74 Year
  Sex: Male

DRUGS (17)
  1. CYMBALTA [Suspect]
     Indication: DEPRESSION
     Dosage: 60 MG, UNK
  2. DUONEB [Concomitant]
  3. DIAZEPAM [Concomitant]
  4. VICODIN [Concomitant]
  5. LEVAQUIN [Concomitant]
  6. ALPHAGAN [Concomitant]
  7. XALATAN [Concomitant]
  8. METOPROLOL SUCCINATE [Concomitant]
  9. LORATADINE [Concomitant]
  10. DITROPAN [Concomitant]
  11. FOSAMAX [Concomitant]
  12. PROSCAR [Concomitant]
  13. PRILOSEC [Concomitant]
  14. SENNA SYRUP [Concomitant]
  15. CALCIUM CHLORIDE [Concomitant]
  16. LACTULOSE [Concomitant]
  17. TYLENOL /SCH/ [Concomitant]

REACTIONS (7)
  - ABDOMINAL DISTENSION [None]
  - ASPIRATION [None]
  - HERNIA [None]
  - INTESTINAL OBSTRUCTION [None]
  - NAUSEA [None]
  - RESPIRATORY DISTRESS [None]
  - URINARY TRACT INFECTION [None]
